FAERS Safety Report 18743990 (Version 7)
Quarter: 2021Q3

REPORT INFORMATION
  Report Type: Spontaneous
  Country: JP (occurrence: JP)
  Receive Date: 20210114
  Receipt Date: 20210730
  Transmission Date: 20211014
  Serious: Yes (Hospitalization, Other)
  Sender: FDA-Public Use
  Company Number: JP-LUNDBECK-DKLU3026706

PATIENT
  Age: 7 Month
  Sex: Female
  Weight: 9.1 kg

DRUGS (13)
  1. TRICLORYL [Concomitant]
     Active Substance: TRICLOFOS SODIUM
     Dosage: 7 ML/DAY
     Route: 048
     Dates: start: 20210105, end: 20210105
  2. VIGABATRIN (FOR ORAL SOLUTION) [Suspect]
     Active Substance: VIGABATRIN
     Indication: INFANTILE SPASMS
     Dosage: 48 MG/KG/DAY (380 MG/DAY), BID
     Route: 048
     Dates: start: 20201027, end: 20201029
  3. VIGABATRIN (FOR ORAL SOLUTION) [Suspect]
     Active Substance: VIGABATRIN
     Dosage: 126.6 MG/KG/DAY (1000 MG/DAY), BID
     Route: 048
     Dates: start: 20201106, end: 20201119
  4. VIGABATRIN (FOR ORAL SOLUTION) [Suspect]
     Active Substance: VIGABATRIN
     Dosage: 43.5 MG/KG/DAY (500 MG/DAY), BID
     Route: 048
     Dates: start: 20210511, end: 20210513
  5. VIGABATRIN (FOR ORAL SOLUTION) [Suspect]
     Active Substance: VIGABATRIN
     Indication: INFANTILE SPASMS
     Dosage: 147.4 MG/KG/DAY (1250 MG/DAY), BID
     Route: 048
     Dates: start: 20201120, end: 20210105
  6. TRICLORYL [Concomitant]
     Active Substance: TRICLOFOS SODIUM
     Indication: INVESTIGATION
     Dosage: 6 ML/DAY
     Route: 048
     Dates: start: 20201204, end: 20201204
  7. VIGABATRIN (FOR ORAL SOLUTION) [Suspect]
     Active Substance: VIGABATRIN
     Dosage: 73.4 MG/KG/DAY (580 MG/DAY), BID
     Route: 048
     Dates: start: 20201031, end: 20201102
  8. VIGABATRIN (FOR ORAL SOLUTION) [Suspect]
     Active Substance: VIGABATRIN
     Dosage: 98 MG/KG/DAY (780 MG/DAY), BID
     Route: 048
     Dates: start: 20201103, end: 20201105
  9. VIGABATRIN (FOR ORAL SOLUTION) [Suspect]
     Active Substance: VIGABATRIN
     Dosage: 81.6 MG/KG/DAY (800 MG/DAY), BID
     Route: 048
     Dates: start: 20210109, end: 20210510
  10. VIGABATRIN (FOR ORAL SOLUTION) [Suspect]
     Active Substance: VIGABATRIN
     Dosage: 117.2 MG/KG/DAY (1125 MG/DAY), BID
     Route: 048
     Dates: start: 20210106, end: 20210108
  11. TRICLORYL [Concomitant]
     Active Substance: TRICLOFOS SODIUM
     Indication: PROPHYLAXIS
     Dosage: 8 ML/DAY
     Route: 048
     Dates: start: 20201218, end: 20201218
  12. VIGABATRIN (FOR ORAL SOLUTION) [Suspect]
     Active Substance: VIGABATRIN
     Dosage: 21.7 MG/KG/DAY (250 MG/DAY), BID
     Route: 048
     Dates: start: 20210514, end: 20210516
  13. LEVETIRACETAM. [Suspect]
     Active Substance: LEVETIRACETAM
     Indication: INFANTILE SPASMS
     Dosage: DAILY DOSAGE: 250 MG
     Route: 048
     Dates: start: 20201205, end: 20210108

REACTIONS (3)
  - Hypertension [Recovered/Resolved]
  - Magnetic resonance imaging head abnormal [Recovered/Resolved]
  - Anaemia [Recovered/Resolved]

NARRATIVE: CASE EVENT DATE: 20201222
